FAERS Safety Report 18863547 (Version 1)
Quarter: 2021Q1

REPORT INFORMATION
  Report Type: Spontaneous
  Country: PL (occurrence: PL)
  Receive Date: 20210209
  Receipt Date: 20210209
  Transmission Date: 20210420
  Serious: Yes (Hospitalization, Other)
  Sender: FDA-Public Use
  Company Number: PL-CELLTRION INC.-2021PL001470

PATIENT

DRUGS (3)
  1. MESALAZINE [Concomitant]
     Active Substance: MESALAMINE
     Indication: CROHN^S DISEASE
  2. PROBIOTICS NOS [Concomitant]
     Active Substance: PROBIOTICS NOS
     Indication: CROHN^S DISEASE
  3. INFLIXIMAB (UNKNOWN) [Suspect]
     Active Substance: INFLIXIMAB
     Dosage: UNK

REACTIONS (4)
  - Bone marrow failure [Unknown]
  - Disseminated tuberculosis [Recovering/Resolving]
  - Agitation [Unknown]
  - Psychotic symptom [Unknown]
